FAERS Safety Report 4498059-9 (Version None)
Quarter: 2004Q4

REPORT INFORMATION
  Report Type: 
  Country: None (occurrence: None)
  Receive Date: 20041109
  Receipt Date: 20041109
  Transmission Date: 20050328
  Serious: No
  Sender: FDA-Public Use
  Company Number: None

PATIENT
  Age: 56 Year
  Sex: Female
  Weight: 63.05 kg

DRUGS (7)
  1. XYREM [Suspect]
     Indication: HYPERSOMNIA
     Dosage: 6GM/NIGHT X 4 - 047
     Dates: start: 20041001, end: 20041005
  2. XYREM [Suspect]
     Indication: INSOMNIA
     Dosage: 6GM/NIGHT X 4 - 047
     Dates: start: 20041001, end: 20041005
  3. XYREM [Suspect]
     Indication: SLEEP DISORDER
     Dosage: 9GM/NIGHT X 4 - 047
     Dates: start: 20041005, end: 20041008
  4. PROVIGIL [Concomitant]
  5. ADDERALL XR 20 [Concomitant]
  6. PROZAC [Concomitant]
  7. DIPHENHYDRAMINE [Concomitant]

REACTIONS (4)
  - HEADACHE [None]
  - PARAESTHESIA [None]
  - SENSATION OF HEAVINESS [None]
  - SWOLLEN TONGUE [None]
